FAERS Safety Report 19449504 (Version 2)
Quarter: 2021Q2

REPORT INFORMATION
  Report Type: Report from Study
  Country: CA (occurrence: CA)
  Receive Date: 20210622
  Receipt Date: 20210624
  Transmission Date: 20210717
  Serious: Yes (Other)
  Sender: FDA-Public Use
  Company Number: CA-TAIHO ONCOLOGY  INC-EU-2021-01924

PATIENT
  Age: 59 Year
  Sex: Male
  Weight: 95.7 kg

DRUGS (1)
  1. LONSURF [Suspect]
     Active Substance: TIPIRACIL HYDROCHLORIDE\TRIFLURIDINE
     Indication: COLORECTAL CANCER METASTATIC
     Dosage: DOSE, FREQUENCY AND CYCLE UNKNOWN
     Route: 048
     Dates: start: 20200320

REACTIONS (2)
  - Stoma creation [Unknown]
  - Drug ineffective [Unknown]
